FAERS Safety Report 9699270 (Version 1)
Quarter: 2013Q4

REPORT INFORMATION
  Report Type: Spontaneous
  Country: US (occurrence: US)
  Receive Date: 20131120
  Receipt Date: 20131120
  Transmission Date: 20140711
  Serious: No
  Sender: FDA-Public Use
  Company Number: US-GILEAD-2008-0015337

PATIENT
  Sex: Female
  Weight: 63.5 kg

DRUGS (7)
  1. LETAIRIS [Suspect]
     Indication: PULMONARY ARTERIAL HYPERTENSION
     Route: 048
     Dates: start: 20070921
  2. ALDACTONE [Concomitant]
     Route: 048
  3. DEPO-PROVERA [Concomitant]
     Route: 048
  4. LASIX [Concomitant]
     Route: 048
  5. VIAGRA [Concomitant]
     Route: 048
  6. LANOXIN [Concomitant]
     Route: 048
  7. POTASSIUM CHLORIDE [Concomitant]
     Route: 048

REACTIONS (2)
  - Nausea [Unknown]
  - Vomiting [Unknown]
